FAERS Safety Report 8599451-3 (Version None)
Quarter: 2012Q3

REPORT INFORMATION
  Report Type: 
  Country: None (occurrence: None)
  Receive Date: 20120816
  Receipt Date: 20120807
  Transmission Date: 20120928
  Serious: Yes (Other)
  Sender: FDA-Public Use
  Company Number: CN-B.I. PHARMACEUTICALS,INC./RIDGEFIELD-2012-BP-19317BP

PATIENT
  Sex: Male
  Weight: 62 kg

DRUGS (2)
  1. TIOTROPIUM [Suspect]
     Indication: DYSPNOEA
     Dosage: 36 MCG
     Route: 055
     Dates: start: 20090523, end: 20090523
  2. SALMETEROL XINAFOATE AND FLUTICASONE PROPRIONATE [Suspect]
     Indication: DYSPNOEA
     Dosage: 10 MCG
     Dates: end: 20090523

REACTIONS (3)
  - URINARY INCONTINENCE [None]
  - HYPERHIDROSIS [None]
  - ASTHMA [None]
